FAERS Safety Report 16886594 (Version 1)
Quarter: 2019Q4

REPORT INFORMATION
  Report Type: Spontaneous
  Country: US (occurrence: US)
  Receive Date: 20191004
  Receipt Date: 20191004
  Transmission Date: 20200122
  Serious: No
  Sender: FDA-Public Use
  Company Number: US-SA-2019SA274793

PATIENT
  Age: 58 Year
  Sex: Male

DRUGS (1)
  1. TOUJEO [Suspect]
     Active Substance: INSULIN GLARGINE
     Indication: TYPE 2 DIABETES MELLITUS
     Dosage: 12 U, QD
     Route: 065
     Dates: start: 20190919, end: 20191001

REACTIONS (6)
  - Feeling hot [Unknown]
  - Knee operation [Unknown]
  - Intentional dose omission [Unknown]
  - Akathisia [Unknown]
  - Dyspnoea [Unknown]
  - Insomnia [Unknown]
